FAERS Safety Report 7622579-9 (Version None)
Quarter: 2011Q3

REPORT INFORMATION
  Report Type: 
  Country: None (occurrence: None)
  Receive Date: 20110701
  Receipt Date: 20100907
  Transmission Date: 20111222
  Serious: Yes (Hospitalization)
  Sender: FDA-Public Use
  Company Number: 7017119

PATIENT
  Age: 62 Year
  Sex: Male

DRUGS (2)
  1. REBIF [Suspect]
     Indication: MULTIPLE SCLEROSIS
     Dosage: 44 ,CG. 3 WK, SUBCUTANEOUS
     Route: 058
     Dates: start: 20030824
  2. INSULIN (INSULIN) [Concomitant]

REACTIONS (4)
  - MULTIPLE SCLEROSIS RELAPSE [None]
  - CHILLS [None]
  - URINARY TRACT INFECTION [None]
  - PYREXIA [None]
